FAERS Safety Report 8610581 (Version 4)
Quarter: 2012Q4

REPORT INFORMATION
  Report Type: Report from Study
  Country: GB (occurrence: GB)
  Receive Date: 20120612
  Receipt Date: 20121109
  Transmission Date: 20130627
  Serious: Yes (Death, Hospitalization)
  Sender: FDA-Public Use
  Company Number: GB-ROCHE-1054479

PATIENT
  Age: 50 Year
  Sex: Male
  Weight: 81 kg

DRUGS (18)
  1. BI 201335 [Suspect]
     Indication: CHRONIC HEPATITIS C
     Route: 048
     Dates: start: 20120111, end: 20120314
  2. BI 201335 [Suspect]
     Indication: HIV INFECTION
  3. PEG-INTERFERON ALFA 2A [Suspect]
     Indication: CHRONIC HEPATITIS C
     Route: 058
     Dates: start: 20120111, end: 20120307
  4. PEG-INTERFERON ALFA 2A [Suspect]
     Indication: HIV INFECTION
     Route: 058
     Dates: start: 20120313, end: 20120314
  5. RIBAVIRIN [Suspect]
     Indication: CHRONIC HEPATITIS C
     Route: 048
     Dates: start: 20120111, end: 20120312
  6. RIBAVIRIN [Suspect]
     Indication: HIV INFECTION
     Route: 048
     Dates: start: 20120313, end: 20120314
  7. ACICLOVIR [Concomitant]
     Indication: PROPHYLAXIS
     Route: 048
  8. TRUVADA [Concomitant]
     Indication: HIV INFECTION
     Dosage: 1 ANZ
     Route: 048
     Dates: start: 20111102
  9. RALTEGRAVIR [Concomitant]
     Indication: HIV INFECTION
     Route: 048
     Dates: start: 20111102
  10. PARACETAMOL [Concomitant]
     Indication: INFLUENZA LIKE ILLNESS
     Route: 048
     Dates: start: 20120120
  11. NYSTATIN [Concomitant]
     Indication: OROPHARYNGEAL PAIN
     Dosage: 6 drops
     Route: 048
     Dates: start: 20120307
  12. CIPROFLOXACIN [Concomitant]
     Indication: OROPHARYNGEAL PAIN
     Route: 048
     Dates: start: 20120307, end: 20120311
  13. CITALOPRAM [Concomitant]
     Indication: DEPRESSED MOOD
     Route: 048
     Dates: start: 20120307
  14. CITALOPRAM [Concomitant]
     Indication: INSOMNIA
  15. FORTISIP [Concomitant]
     Indication: DECREASED APPETITE
     Dosage: 1-2 cartons
     Route: 048
     Dates: start: 20120301
  16. METRONIDAZOLE [Concomitant]
     Indication: OROPHARYNGEAL PAIN
     Route: 048
     Dates: start: 20120313
  17. SUNSCREEN [Concomitant]
     Route: 065
     Dates: start: 20120111
  18. FORTIJUICE [Concomitant]
     Indication: OROPHARYNGEAL PAIN
     Route: 065
     Dates: start: 20120313

REACTIONS (12)
  - Pneumonia [Not Recovered/Not Resolved]
  - Pulmonary tuberculosis [Not Recovered/Not Resolved]
  - Lymphoma [Not Recovered/Not Resolved]
  - Sarcoidosis [Not Recovered/Not Resolved]
  - White blood cell analysis [Not Recovered/Not Resolved]
  - Diarrhoea [Not Recovered/Not Resolved]
  - Pyrexia [Not Recovered/Not Resolved]
  - Drug reaction with eosinophilia and systemic symptoms [Not Recovered/Not Resolved]
  - Dyspnoea [Not Recovered/Not Resolved]
  - Decreased appetite [Not Recovered/Not Resolved]
  - Vomiting [Not Recovered/Not Resolved]
  - Stevens-Johnson syndrome [Fatal]
